FAERS Safety Report 21387859 (Version 1)
Quarter: 2022Q3

REPORT INFORMATION
  Report Type: Spontaneous
  Country: US (occurrence: None)
  Receive Date: 20220926
  Receipt Date: 20220926
  Transmission Date: 20221027
  Serious: Yes (Hospitalization)
  Sender: FDA-Public Use
  Company Number: None

PATIENT
  Age: 56 Year
  Sex: Female

DRUGS (1)
  1. CAPECITABINE [Suspect]
     Active Substance: CAPECITABINE
     Route: 048

REACTIONS (6)
  - Fatigue [None]
  - Pyrexia [None]
  - Bone pain [None]
  - Arthralgia [None]
  - Fall [None]
  - Therapy interrupted [None]

NARRATIVE: CASE EVENT DATE: 20220926
